FAERS Safety Report 8620157-6 (Version None)
Quarter: 2012Q3

REPORT INFORMATION
  Report Type: 
  Country: None (occurrence: None)
  Receive Date: 20120816
  Receipt Date: 20120816
  Transmission Date: 20120928
  Serious: Yes (Hospitalization)
  Sender: FDA-Public Use
  Company Number: None

PATIENT
  Age: 79 Year
  Sex: Female
  Weight: 80 kg

DRUGS (3)
  1. WARFARIN SODIUM [Suspect]
     Indication: ATRIAL FIBRILLATION
     Dosage: WARFARIN 5 MG, DAILY, PO
     Route: 048
  2. WARFARIN SODIUM [Suspect]
     Indication: THROMBOSIS
     Dosage: WARFARIN 5 MG, DAILY, PO
     Route: 048
  3. ASPIRIN [Suspect]
     Indication: CARDIAC DISORDER
     Dosage: ASPIRIN 81 MG, DAILY, PO
     Route: 048

REACTIONS (5)
  - FAECES DISCOLOURED [None]
  - GROIN ABSCESS [None]
  - DYSPHAGIA [None]
  - ASTHENIA [None]
  - INTERNATIONAL NORMALISED RATIO INCREASED [None]
